FAERS Safety Report 18135901 (Version 12)
Quarter: 2022Q4

REPORT INFORMATION
  Report Type: Report from Study
  Country: CH (occurrence: CH)
  Receive Date: 20200811
  Receipt Date: 20221021
  Transmission Date: 20230113
  Serious: Yes (Hospitalization)
  Sender: FDA-Public Use
  Company Number: NVSC2020CH217735

PATIENT
  Age: 54 Year
  Sex: Male
  Weight: 87.7 kg

DRUGS (11)
  1. SPARTALIZUMAB [Suspect]
     Active Substance: SPARTALIZUMAB
     Indication: Metastatic malignant melanoma
     Dosage: 400 MG, Q4W
     Route: 042
     Dates: start: 20200117
  2. RIBOCICLIB [Suspect]
     Active Substance: RIBOCICLIB
     Indication: Metastatic malignant melanoma
     Dosage: 600 MG, Q24H
     Route: 048
     Dates: start: 20200117, end: 20200731
  3. RIBOCICLIB [Suspect]
     Active Substance: RIBOCICLIB
     Dosage: 600 MG, Q24H
     Route: 048
     Dates: start: 20200804
  4. PREDNISONE [Concomitant]
     Active Substance: PREDNISONE
     Indication: Blood creatine phosphokinase increased
     Dosage: UNK
     Route: 065
     Dates: start: 2018
  5. LEVOTHYROXINE [Concomitant]
     Active Substance: LEVOTHYROXINE
     Indication: Hypothyroidism
     Dosage: UNK
     Route: 065
     Dates: start: 20180501
  6. VITAMIN D3 [Concomitant]
     Active Substance: CHOLECALCIFEROL
     Indication: Prophylaxis
     Dosage: UNK
     Route: 065
     Dates: start: 2018
  7. CALCIUM\CHOLECALCIFEROL [Concomitant]
     Active Substance: CALCIUM\CHOLECALCIFEROL
     Indication: Prophylaxis
     Dosage: UNK
     Route: 065
     Dates: start: 2018
  8. ACLASTA [Concomitant]
     Active Substance: ZOLEDRONIC ACID
     Indication: Osteoporosis
     Dosage: UNK
     Route: 065
     Dates: start: 20200729
  9. DAFALGAN [Concomitant]
     Active Substance: ACETAMINOPHEN
     Indication: Sciatica
     Dosage: UNK
     Route: 065
     Dates: start: 20200212
  10. VENLAFAXINE HYDROCHLORIDE [Concomitant]
     Active Substance: VENLAFAXINE HYDROCHLORIDE
     Indication: Depressed mood
     Dosage: UNK
     Route: 065
     Dates: start: 20200409
  11. PANTOZOL [Concomitant]
     Active Substance: PANTOPRAZOLE SODIUM
     Indication: Reflux gastritis
     Dosage: 40 MG
     Route: 065
     Dates: start: 2019, end: 20210504

REACTIONS (1)
  - Gastritis [Recovered/Resolved]

NARRATIVE: CASE EVENT DATE: 20200801
